FAERS Safety Report 6439696-1 (Version None)
Quarter: 2009Q4

REPORT INFORMATION
  Report Type: 
  Country: None (occurrence: None)
  Receive Date: 20091113
  Receipt Date: 20091104
  Transmission Date: 20100525
  Serious: Yes (Death)
  Sender: FDA-Public Use
  Company Number: GXKR2009GB12156

PATIENT
  Age: 95 Year
  Sex: Female

DRUGS (3)
  1. METOCLOPRAMIDE (NGX) [Suspect]
     Route: 048
  2. TRAMADOL HCL [Suspect]
     Dosage: 50 MG, UNK
     Route: 042
  3. ENTONOX [Concomitant]
     Indication: PAIN
     Route: 065

REACTIONS (3)
  - OBSTRUCTIVE AIRWAYS DISORDER [None]
  - RESPIRATORY ARREST [None]
  - SWELLING [None]
